FAERS Safety Report 16141684 (Version 4)
Quarter: 2020Q4

REPORT INFORMATION
  Report Type: Report from Study
  Country: None (occurrence: US)
  Receive Date: 20190401
  Receipt Date: 20201006
  Transmission Date: 20210113
  Serious: Yes (Disabling, Other)
  Sender: FDA-Public Use
  Company Number: US-ABBVIE-19K-163-2725535-00

PATIENT
  Sex: Male

DRUGS (1)
  1. HUMIRA [Suspect]
     Active Substance: ADALIMUMAB
     Indication: PSORIASIS
     Route: 058

REACTIONS (12)
  - Therapeutic product effect decreased [Unknown]
  - Clavicle fracture [Unknown]
  - Mobility decreased [Unknown]
  - Feeling abnormal [Unknown]
  - Road traffic accident [Not Recovered/Not Resolved]
  - Headache [Not Recovered/Not Resolved]
  - Mental disorder [Not Recovered/Not Resolved]
  - Lower limb fracture [Unknown]
  - Brain injury [Unknown]
  - Arthralgia [Not Recovered/Not Resolved]
  - Memory impairment [Not Recovered/Not Resolved]
  - Pain [Not Recovered/Not Resolved]

NARRATIVE: CASE EVENT DATE: 2016
